FAERS Safety Report 7351273-7 (Version None)
Quarter: 2011Q1

REPORT INFORMATION
  Report Type: 
  Country: None (occurrence: None)
  Receive Date: 20110314
  Receipt Date: 20110301
  Transmission Date: 20110831
  Serious: Yes (Hospitalization, Disabling)
  Sender: FDA-Public Use
  Company Number: US-BAYER-200924709NA

PATIENT
  Sex: Male
  Weight: 75.864 kg

DRUGS (38)
  1. SORAFENIB (RAF KINASE INHIBITOR) [Suspect]
     Indication: COLORECTAL CANCER METASTATIC
     Dosage: 400 MG, BID
     Route: 048
     Dates: start: 20090526, end: 20090609
  2. OXALIPLATIN [Suspect]
     Dosage: DAILY DOSE 160 MG
     Route: 042
     Dates: start: 20090707, end: 20090707
  3. 5-FU [Suspect]
     Dosage: DAILY DOSE 750 MG
     Route: 040
     Dates: start: 20090609, end: 20090609
  4. TAMSULOSIN [Concomitant]
     Dosage: 0.4 MG, UNK
     Dates: start: 20080510, end: 20091228
  5. AMLODIPINE [Concomitant]
     Dosage: 5 MG, UNK
     Dates: start: 20080519, end: 20091228
  6. ASCORBIC ACID [Concomitant]
     Indication: MEDICAL DIET
  7. ONDANSETRON [Concomitant]
     Dosage: 12 MG (DAILY DOSE), ,
     Dates: start: 20090707, end: 20090707
  8. SORAFENIB (RAF KINASE INHIBITOR) [Suspect]
     Dosage: 400 MG, QD
     Route: 048
     Dates: start: 20090609, end: 20090615
  9. OXALIPLATIN [Suspect]
     Indication: COLORECTAL CANCER METASTATIC
     Dosage: DAILY DOSE 160 MG
     Route: 042
     Dates: start: 20090526, end: 20090526
  10. LEUCOVORIN CALCIUM [Suspect]
     Indication: COLORECTAL CANCER METASTATIC
     Dosage: DAILY DOSE 750 MG
     Route: 042
     Dates: start: 20090526, end: 20090526
  11. LEUCOVORIN CALCIUM [Suspect]
     Route: 042
     Dates: start: 20090609, end: 20090609
  12. ASCORBIC ACID [Concomitant]
     Indication: VITAMIN SUPPLEMENTATION
     Dates: start: 20090519, end: 20091228
  13. 5-FU [Suspect]
     Dosage: DAILY DOSE 4475 MG
     Route: 042
     Dates: start: 20090707, end: 20090709
  14. ASPIRIN [Concomitant]
     Indication: VITAMIN SUPPLEMENTATION
     Dates: start: 20070101
  15. TAMSULOSIN [Concomitant]
     Indication: BENIGN PROSTATIC HYPERPLASIA
     Dates: start: 20070101
  16. DEXAMETHASONE [Concomitant]
     Indication: THROMBOSIS PROPHYLAXIS
     Dosage: 10 MG (DAILY DOSE), ,
     Dates: start: 20090526, end: 20090526
  17. ONDANSETRON [Concomitant]
     Indication: PREMEDICATION
     Dosage: 12 MG (DAILY DOSE), ,
     Dates: start: 20090526, end: 20090526
  18. SIMVASTATIN [Concomitant]
     Dosage: 40 MG, UNK
     Dates: start: 20090519, end: 20091228
  19. DEXAMETHASONE [Concomitant]
     Dosage: 10 MG (DAILY DOSE), ,
     Dates: start: 20090609, end: 20090609
  20. HEPARIN [Concomitant]
     Indication: THROMBOSIS PROPHYLAXIS
     Dosage: UNK
     Dates: start: 20090623, end: 20090623
  21. 5-FU [Suspect]
     Dosage: DAILY DOSE 4500 MG
     Route: 042
     Dates: start: 20090526, end: 20090528
  22. ATENOLOL [Concomitant]
     Indication: HYPERTENSION
     Dates: start: 20070101
  23. LISINOPRIL [Concomitant]
     Indication: HYPERTENSION
     Dates: start: 20070101
  24. SIMVASTATIN [Concomitant]
     Indication: HYPERLIPIDAEMIA
     Dates: start: 20070101
  25. LISINOPRIL [Concomitant]
     Dosage: 40 MG, UNK
     Dates: start: 20080519, end: 20091228
  26. ACETAMINOPHEN [Concomitant]
     Indication: PAIN
     Dosage: UNK UNK, PRN
     Dates: start: 20090526, end: 20091228
  27. DEXAMETHASONE [Concomitant]
     Dosage: 10 MG (DAILY DOSE), ,
     Dates: start: 20090707, end: 20090707
  28. 5-FU [Suspect]
     Dosage: DAILY DOSE 750 MG
     Route: 040
     Dates: start: 20090707, end: 20090707
  29. ASPIRIN [Concomitant]
     Indication: ISCHAEMIC HEART DISEASE PROPHYLAXIS
     Dosage: 81 MG, UNK
     Dates: start: 20090519, end: 20091228
  30. AMLODIPINE [Concomitant]
     Indication: HYPERTENSION
     Dates: start: 20070101
  31. METFORMIN [Concomitant]
     Indication: TYPE 2 DIABETES MELLITUS
     Dates: start: 20070101
  32. ONDANSETRON [Concomitant]
     Dosage: 12 MG (DAILY DOSE), ,
     Dates: start: 20090609, end: 20090609
  33. OXALIPLATIN [Suspect]
     Dosage: DAILY DOSE 155 MG
     Route: 042
     Dates: start: 20090609, end: 20090609
  34. LEUCOVORIN CALCIUM [Suspect]
     Route: 042
     Dates: start: 20090707, end: 20090707
  35. 5-FU [Suspect]
     Indication: COLORECTAL CANCER METASTATIC
     Dosage: DAILY DOSE 750 MG
     Route: 040
     Dates: start: 20090526, end: 20090526
  36. 5-FU [Suspect]
     Dosage: DAILY DOSE 4450 MG
     Route: 042
     Dates: start: 20090609, end: 20090611
  37. ATENOLOL [Concomitant]
     Dosage: 25 MG, UNK
     Dates: start: 20080519, end: 20091228
  38. METFORMIN [Concomitant]
     Dosage: 500 MG, UNK
     Dates: start: 20080519, end: 20091228

REACTIONS (4)
  - SKIN ULCER [None]
  - CELLULITIS [None]
  - OSTEOMYELITIS [None]
  - DIABETIC FOOT INFECTION [None]
